FAERS Safety Report 10072572 (Version 1)
Quarter: 2014Q2

REPORT INFORMATION
  Report Type: Spontaneous
  Country: US (occurrence: US)
  Receive Date: 20140411
  Receipt Date: 20140411
  Transmission Date: 20141212
  Serious: Yes (Other)
  Sender: FDA-Public Use
  Company Number: US-PFIZER INC-2014056676

PATIENT
  Age: 62 Year
  Sex: Female

DRUGS (3)
  1. LIDOCAINE HCL [Suspect]
     Dosage: UNK
  2. IODINE [Suspect]
     Dosage: UNK
  3. DYPHYLLINE [Suspect]
     Dosage: UNK

REACTIONS (2)
  - Anaphylactic reaction [Unknown]
  - Asthma [Unknown]
